FAERS Safety Report 7318022-X (Version None)
Quarter: 2011Q1

REPORT INFORMATION
  Report Type: 
  Country: None (occurrence: None)
  Receive Date: 20110227
  Receipt Date: 20110222
  Transmission Date: 20110831
  Serious: Yes (Other)
  Sender: FDA-Public Use
  Company Number: FR-BRISTOL-MYERS SQUIBB COMPANY-15479660

PATIENT
  Age: 20 Year
  Sex: Female
  Weight: 46 kg

DRUGS (6)
  1. ABILIFY [Suspect]
     Indication: BORDERLINE PERSONALITY DISORDER
     Dosage: MORNING
     Route: 048
     Dates: start: 20100901, end: 20101007
  2. ABILIFY [Suspect]
     Indication: PSYCHOTIC DISORDER
     Dosage: MORNING
     Route: 048
     Dates: start: 20100901, end: 20101007
  3. ABILIFY [Suspect]
     Indication: SCHIZOPHRENIA
     Dosage: MORNING
     Route: 048
     Dates: start: 20100901, end: 20101007
  4. XANAX [Concomitant]
     Indication: ANXIETY
     Dosage: BEFORE JUN10 ALSO :5MG DOSAGEG:1-3 TABS
     Route: 048
     Dates: start: 20100301, end: 20101007
  5. SEROPLEX [Suspect]
     Indication: SUICIDE ATTEMPT
     Dosage: ALSO 20MG/DAY REDUCED TO 10MG/DAY FROM 07OCT10
     Route: 048
     Dates: start: 20100301
  6. SEROPLEX [Suspect]
     Indication: DEPRESSION
     Dosage: ALSO 20MG/DAY REDUCED TO 10MG/DAY FROM 07OCT10
     Route: 048
     Dates: start: 20100301

REACTIONS (7)
  - HYPOMANIA [None]
  - DISINHIBITION [None]
  - SEXUALLY INAPPROPRIATE BEHAVIOUR [None]
  - LOGORRHOEA [None]
  - ABNORMAL BEHAVIOUR [None]
  - LIBIDO INCREASED [None]
  - INITIAL INSOMNIA [None]
